FAERS Safety Report 10428695 (Version 1)
Quarter: 2014Q3

REPORT INFORMATION
  Report Type: Spontaneous
  Country: CA (occurrence: None)
  Receive Date: 20140902
  Receipt Date: 20140902
  Transmission Date: 20150326
  Serious: Yes (Death, Other)
  Sender: FDA-Public Use
  Company Number: ADR-2014-01562

PATIENT
  Age: 60 Year
  Sex: Male

DRUGS (7)
  1. NORTRIPTYLINE [Suspect]
     Active Substance: NORTRIPTYLINE
  2. GABAPENTIN. [Suspect]
     Active Substance: GABAPENTIN
  3. BACLOFEN. [Suspect]
     Active Substance: BACLOFEN
     Indication: CANCER PAIN
  4. KETAMINE [Suspect]
     Active Substance: KETAMINE
     Indication: CANCER PAIN
  5. OPIOIDS [Suspect]
     Active Substance: UNSPECIFIED INGREDIENT
  6. ANTINFLAMATORIES [Concomitant]
  7. METOCLOPRAMIDE. [Suspect]
     Active Substance: METOCLOPRAMIDE

REACTIONS (10)
  - Oncologic complication [None]
  - Haemorrhage [None]
  - Sedation [None]
  - Procedural pain [None]
  - Neck pain [None]
  - Emotional distress [None]
  - Wound [None]
  - Inadequate analgesia [None]
  - Asthenia [None]
  - Delirium [None]

NARRATIVE: CASE EVENT DATE: 20140213
